FAERS Safety Report 8417619-3 (Version None)
Quarter: 2012Q2

REPORT INFORMATION
  Report Type: 
  Country: None (occurrence: None)
  Receive Date: 20120606
  Receipt Date: 20120525
  Transmission Date: 20120825
  Serious: Yes (Death)
  Sender: FDA-Public Use
  Company Number: JP-ROCHE-1075185

PATIENT
  Age: 82 Year
  Sex: Male

DRUGS (5)
  1. TICLOPIDINE HYDROCHLORIDE [Concomitant]
  2. INSULIN HUMAN [Suspect]
     Indication: PRODUCT USED FOR UNKNOWN INDICATION
     Route: 051
  3. CLOPIDOGREL [Concomitant]
     Route: 048
     Dates: start: 20120109
  4. EDARAVONE [Suspect]
     Indication: THROMBOTIC CEREBRAL INFARCTION
     Route: 042
  5. ALTEPLASE [Suspect]
     Indication: THROMBOTIC CEREBRAL INFARCTION
     Route: 042
     Dates: start: 20120108, end: 20120108

REACTIONS (1)
  - MULTI-ORGAN FAILURE [None]
